FAERS Safety Report 8306505-5 (Version None)
Quarter: 2012Q2

REPORT INFORMATION
  Report Type: 
  Country: None (occurrence: None)
  Receive Date: 20120424
  Receipt Date: 20120418
  Transmission Date: 20120825
  Serious: No
  Sender: FDA-Public Use
  Company Number: US-BIOGENIDEC-2012BI012211

PATIENT
  Sex: Male

DRUGS (2)
  1. TYLENOL COLD AND FLU [Concomitant]
     Indication: PREMEDICATION
  2. AVONEX [Suspect]
     Indication: MULTIPLE SCLEROSIS
     Route: 030
     Dates: start: 20070401, end: 20070601

REACTIONS (2)
  - INFLUENZA LIKE ILLNESS [None]
  - DRUG INTOLERANCE [None]
